FAERS Safety Report 16030745 (Version 3)
Quarter: 2020Q1

REPORT INFORMATION
  Report Type: Spontaneous
  Country: US (occurrence: US)
  Receive Date: 20190304
  Receipt Date: 20200302
  Transmission Date: 20200409
  Serious: No
  Sender: FDA-Public Use
  Company Number: US-PFIZER INC-2019084454

PATIENT
  Age: 71 Year
  Sex: Female

DRUGS (15)
  1. NOVOLIN R [Concomitant]
     Active Substance: INSULIN HUMAN
     Dosage: 5 IU, 1X/DAY
     Dates: start: 20190530
  2. BUMETANIDE. [Concomitant]
     Active Substance: BUMETANIDE
     Dosage: 1 MG, DAILY
  3. CLONIDINE HCL [Concomitant]
     Active Substance: CLONIDINE HYDROCHLORIDE
     Indication: BLOOD PRESSURE SYSTOLIC INCREASED
     Dosage: 0.1 MG, AS NEEDED, (1 TABLET ORALLY EVERY 4 HOURS PRN)
     Route: 048
  4. CATAPRES-TTS [Concomitant]
     Active Substance: CLONIDINE
     Dosage: 1 DF, WEEKLY
  5. AMLODIPINE BESYLATE. [Concomitant]
     Active Substance: AMLODIPINE BESYLATE
     Dosage: 5 MG, 2X/DAY
     Route: 048
     Dates: start: 20190917
  6. ROSUVASTATIN CALCIUM. [Concomitant]
     Active Substance: ROSUVASTATIN CALCIUM
     Dosage: 81 MG, 1X/DAY
     Route: 048
  7. LYRICA [Suspect]
     Active Substance: PREGABALIN
     Dosage: 150 MG, 2X/DAY (150 MG, TWICE A DAY)
     Route: 048
     Dates: start: 20190523
  8. CYCLOBENZAPRINE HCL [Concomitant]
     Active Substance: CYCLOBENZAPRINE HYDROCHLORIDE
     Dosage: 10 MG, AS NEEDED (AS NEEDED ORALLY THREE TIMES A DAY )
     Route: 048
     Dates: start: 20190629
  9. ASPIR 81 [Concomitant]
     Active Substance: ASPIRIN
     Dosage: 81 MG, 1X/DAY
     Route: 048
  10. ISOSORBIDE MONONITRATE. [Concomitant]
     Active Substance: ISOSORBIDE MONONITRATE
     Dosage: 60 MG, 2X/DAY
  11. OMEPRAZOLE. [Concomitant]
     Active Substance: OMEPRAZOLE
     Dosage: 20 MG, DAILY
  12. CARVEDILOL. [Concomitant]
     Active Substance: CARVEDILOL
     Dosage: 25 MG, 2X/DAY
  13. NOVOLIN N [Concomitant]
     Active Substance: INSULIN HUMAN
     Dosage: 28 IU/ML, DAILY (8 UNITS IN THE AM AND 20 UNITS IN THE PM)
     Route: 058
     Dates: start: 20191017
  14. ENALAPRIL MALEATE. [Concomitant]
     Active Substance: ENALAPRIL MALEATE
     Dosage: 20 MG, 2X/DAY
  15. HYDRALAZINE HCL [Concomitant]
     Active Substance: HYDRALAZINE HYDROCHLORIDE
     Dosage: 100 MG, 3X/DAY

REACTIONS (2)
  - Pain [Unknown]
  - Amnesia [Unknown]
